FAERS Safety Report 5909193-8 (Version None)
Quarter: 2008Q4

REPORT INFORMATION
  Report Type: 
  Country: None (occurrence: None)
  Receive Date: 20081006
  Receipt Date: 20080929
  Transmission Date: 20090506
  Serious: Yes (Other)
  Sender: FDA-Public Use
  Company Number: PHHY2008GB20197

PATIENT
  Sex: Male

DRUGS (6)
  1. CLOZARIL [Suspect]
     Indication: SCHIZOPHRENIA
     Dosage: UNK
     Dates: start: 20070309, end: 20080827
  2. CLOZARIL [Suspect]
     Indication: DEMENTIA ALZHEIMER'S TYPE
  3. CLOZARIL [Suspect]
     Indication: HALLUCINATION
  4. DIAZEPAM [Concomitant]
     Indication: SEDATION
     Dosage: 7 MG/DAY
     Route: 048
  5. CLOMETHIAZOLE [Concomitant]
     Indication: SEDATION
     Dosage: 348 MG/DAY
     Route: 048
  6. ZOPICLONE [Concomitant]
     Indication: SEDATION
     Dosage: 7.5 MG/DAY
     Route: 048

REACTIONS (6)
  - BLOOD CREATINE PHOSPHOKINASE INCREASED [None]
  - CONVULSION [None]
  - GRAND MAL CONVULSION [None]
  - LOWER RESPIRATORY TRACT INFECTION [None]
  - SALIVARY HYPERSECRETION [None]
  - WHITE BLOOD CELL COUNT INCREASED [None]
